FAERS Safety Report 5528851-0 (Version None)
Quarter: 2007Q4

REPORT INFORMATION
  Report Type: 
  Country: None (occurrence: None)
  Receive Date: 20071129
  Receipt Date: 20071121
  Transmission Date: 20080405
  Serious: Yes (Hospitalization, Other)
  Sender: FDA-Public Use
  Company Number: GB-JNJFOC-20071109172

PATIENT
  Age: 87 Year
  Sex: Female

DRUGS (10)
  1. FENTANYL [Suspect]
     Indication: DRUG USE FOR UNKNOWN INDICATION
     Route: 062
  2. ASPIRIN [Concomitant]
     Route: 048
  3. CETIRIZINE HCL [Concomitant]
     Route: 048
  4. DIGOXIN [Concomitant]
     Route: 048
  5. ISOSORBIDE MONONITRATE [Concomitant]
     Route: 048
  6. LANSOPRAZOLE [Concomitant]
     Route: 048
  7. LEVOTHYROXINE SODIUM [Concomitant]
     Route: 048
  8. PARACETAMOL [Concomitant]
     Route: 065
  9. POTASSIUM PERMANGANATE [Concomitant]
     Route: 061
  10. TRIMOVATE [Concomitant]
     Route: 061

REACTIONS (1)
  - APPLICATION SITE DERMATITIS [None]
